FAERS Safety Report 8511228-3 (Version None)
Quarter: 2012Q3

REPORT INFORMATION
  Report Type: 
  Country: None (occurrence: None)
  Receive Date: 20120716
  Receipt Date: 20120712
  Transmission Date: 20120928
  Serious: Yes (Death, Other)
  Sender: FDA-Public Use
  Company Number: PHHY2012GR059974

PATIENT
  Age: 65 Year
  Sex: Female

DRUGS (1)
  1. CARBOPLATIN [Suspect]
     Indication: OVARIAN CANCER
     Dosage: 412 MG

REACTIONS (9)
  - PNEUMONIA [None]
  - DYSPNOEA [None]
  - HYPOTENSION [None]
  - RESPIRATORY FAILURE [None]
  - PYREXIA [None]
  - HYPERSENSITIVITY [None]
  - SEPSIS [None]
  - CONFUSIONAL STATE [None]
  - WHEEZING [None]
